FAERS Safety Report 9171872 (Version 4)
Quarter: 2013Q4

REPORT INFORMATION
  Report Type: Report from Study
  Country: US (occurrence: US)
  Receive Date: 20130319
  Receipt Date: 20131230
  Transmission Date: 20140711
  Serious: Yes (Other)
  Sender: FDA-Public Use
  Company Number: US-ASTRAZENECA-2013SE16531

PATIENT
  Age: 684 Month
  Sex: Female
  Weight: 108 kg

DRUGS (13)
  1. ARIMIDEX [Suspect]
     Indication: BREAST CANCER
     Route: 048
     Dates: start: 201208
  2. BENADRYL [Concomitant]
     Indication: PAIN
     Dosage: PRN
     Dates: start: 201211
  3. BENADRYL [Concomitant]
     Indication: PRURITUS
     Dosage: PRN
     Dates: start: 201211
  4. BENADRYL [Concomitant]
     Indication: DYSPNOEA
     Dosage: PRN
     Dates: start: 201211
  5. BENADRYL [Concomitant]
     Indication: URTICARIA
     Dosage: PRN
     Dates: start: 201211
  6. BENADRYL [Concomitant]
     Indication: RASH MACULAR
     Dosage: PRN
     Dates: start: 201211
  7. LORATAM [Concomitant]
  8. VANCOMICIN [Concomitant]
     Dosage: TWICE DAILY
  9. DICYCLOMINE [Concomitant]
     Indication: DIVERTICULITIS
     Dosage: PRN
     Route: 048
  10. RANITIDINE [Concomitant]
     Indication: DIVERTICULITIS
     Dosage: PRN
     Route: 048
  11. RANITIDINE [Concomitant]
     Indication: DIVERTICULITIS
     Route: 048
  12. GABAPENTIN [Concomitant]
     Indication: PROCEDURAL PAIN
     Dosage: PRN
     Route: 048
  13. GABAPENTIN [Concomitant]
     Indication: PROCEDURAL PAIN
     Route: 048

REACTIONS (19)
  - Rash macular [Not Recovered/Not Resolved]
  - Breast discomfort [Unknown]
  - Staphylococcal infection [Unknown]
  - Arthritis [Not Recovered/Not Resolved]
  - Fatigue [Not Recovered/Not Resolved]
  - Myalgia [Unknown]
  - Urticaria [Unknown]
  - Pruritus [Unknown]
  - Weight increased [Recovered/Resolved]
  - Dyspnoea [Not Recovered/Not Resolved]
  - Pain [Not Recovered/Not Resolved]
  - Mobility decreased [Not Recovered/Not Resolved]
  - Sensitivity to weather change [Not Recovered/Not Resolved]
  - Procedural pain [Unknown]
  - Feeling abnormal [Unknown]
  - Hypertension [Recovered/Resolved]
  - Stress [Recovered/Resolved]
  - Rash [Unknown]
  - Drug dose omission [Unknown]
